FAERS Safety Report 8889742 (Version 1)
Quarter: 2012Q4

REPORT INFORMATION
  Report Type: 
  Country: US (occurrence: US)
  Receive Date: 20121107
  Receipt Date: 20121107
  Transmission Date: 20130627
  Serious: Yes (Other)
  Sender: FDA-Public Use
  Company Number: US-SANOFI-AVENTIS-2012SA081201

PATIENT
  Age: 77 Year
  Sex: Female

DRUGS (2)
  1. LANTUS SOLOSTAR [Suspect]
     Indication: DIABETES MELLITUS
     Dosage: 32 units in the morning and 36 units in pm
     Route: 058
  2. SOLOSTAR [Suspect]
     Indication: DIABETES MELLITUS

REACTIONS (2)
  - Fall [Recovered/Resolved]
  - Lower limb fracture [Unknown]
